FAERS Safety Report 5326553-7 (Version None)
Quarter: 2007Q2

REPORT INFORMATION
  Report Type: 
  Country: None (occurrence: None)
  Receive Date: 20070510
  Receipt Date: 20070508
  Transmission Date: 20071010
  Serious: Yes (Other)
  Sender: FDA-Public Use
  Company Number: 012700

PATIENT
  Age: 16 Year
  Sex: Male

DRUGS (2)
  1. CLARAVIS [Suspect]
     Indication: ACNE
     Dosage: 40 MG, QD, ORAL
     Route: 048
     Dates: start: 20070308, end: 20070409
  2. DITROPAN [Concomitant]

REACTIONS (1)
  - SUICIDAL IDEATION [None]
